FAERS Safety Report 25548442 (Version 1)
Quarter: 2025Q3

REPORT INFORMATION
  Report Type: Report from Study
  Country: US (occurrence: US)
  Receive Date: 20250714
  Receipt Date: 20250714
  Transmission Date: 20251021
  Serious: No
  Sender: SUNOVION
  Company Number: US-SMPA-2025SPA007881AA

PATIENT

DRUGS (1)
  1. ORGOVYX [Suspect]
     Active Substance: RELUGOLIX
     Indication: Prostate cancer
     Dosage: 1 DF, QD (TAKE 1 TABLET BY MOUTH ONCE DAILY AROUND THE SAME TIME EACH DAY)
     Route: 048
     Dates: start: 202506

REACTIONS (1)
  - Arthralgia [Unknown]
